FAERS Safety Report 5921560 (Version 20)
Quarter: 2014Q2

REPORT INFORMATION
  Report Type: Spontaneous
  Country: US (occurrence: US)
  Receive Date: 20051111
  Receipt Date: 20140623
  Transmission Date: 20141212
  Serious: Yes (Life-Threatening, Hospitalization, Disabling, Other)
  Sender: FDA-Public Use
  Company Number: US-009507513-0511USA00806

PATIENT
  Sex: Male
  Weight: 72.58 kg

DRUGS (18)
  1. FOSAMAX [Suspect]
     Indication: OSTEOPOROSIS
     Dosage: 10 MG, QD
     Route: 048
     Dates: start: 199801
  2. FOSAMAX [Suspect]
     Dosage: 70 MG, QW
     Route: 048
     Dates: start: 200201, end: 200302
  3. FOSAMAX [Suspect]
     Dosage: 70 MG, QW
     Route: 048
     Dates: start: 200406, end: 200601
  4. FOSAMAX [Suspect]
     Dosage: 10 MG, UNK
     Route: 048
     Dates: start: 20010714
  5. FOSAMAX [Suspect]
     Dosage: 70 MG, UNK
     Route: 048
     Dates: start: 20020314
  6. FOSAMAX [Suspect]
     Dosage: 50 MG, UNK
     Route: 048
  7. MK-0966 [Suspect]
     Indication: ARTHRITIS
     Dosage: 50 MG, QD
     Route: 048
     Dates: start: 200004, end: 20040930
  8. MK-0966 [Suspect]
     Indication: ANKYLOSING SPONDYLITIS
     Dosage: 25 MG, BID
     Route: 048
     Dates: start: 200004, end: 20040930
  9. MK-0966 [Suspect]
     Indication: RHEUMATOID ARTHRITIS
     Dosage: 25 MG, UNK
     Route: 048
  10. CLONOPIN [Concomitant]
  11. PROTONIX [Concomitant]
  12. OXYCONTIN [Concomitant]
  13. MK-9278 [Concomitant]
     Dates: start: 1992
  14. ASCORBIC ACID [Concomitant]
     Dates: start: 1992
  15. VITAMIN E [Concomitant]
     Dates: start: 1992
  16. METICORTEN [Concomitant]
     Dates: start: 1996
  17. REMICADE [Concomitant]
     Indication: ANKYLOSING SPONDYLITIS
  18. PREDNISONE [Concomitant]
     Indication: ANKYLOSING SPONDYLITIS
     Dosage: 10-20 MG

REACTIONS (120)
  - Femur fracture [Not Recovered/Not Resolved]
  - Bone formation decreased [Unknown]
  - Compression fracture [Unknown]
  - Osteomyelitis [Unknown]
  - Arthritis [Unknown]
  - Infection [Unknown]
  - Arthropathy [Unknown]
  - Fall [Unknown]
  - Fall [Unknown]
  - Spinal disorder [Unknown]
  - Lumbar vertebral fracture [Unknown]
  - Urosepsis [Unknown]
  - Wound drainage [Unknown]
  - Septic shock [Unknown]
  - Ankylosing spondylitis [Unknown]
  - Ankylosing spondylitis [Unknown]
  - Pseudarthrosis [Unknown]
  - Hyperglycaemia [Unknown]
  - Pyrexia [Unknown]
  - Anaemia [Unknown]
  - Duodenitis [Unknown]
  - Fungal infection [Unknown]
  - Arthropathy [Unknown]
  - Arthritis bacterial [Unknown]
  - Postoperative fever [Unknown]
  - Sepsis [Unknown]
  - Autoimmune arthritis [Unknown]
  - Dehydration [Unknown]
  - Arthritis infective [Unknown]
  - Open reduction of fracture [Not Recovered/Not Resolved]
  - Renal failure acute [Recovered/Resolved]
  - Asthenia [Unknown]
  - Pancreatitis [Unknown]
  - Nausea [Recovering/Resolving]
  - Rash [Unknown]
  - Abdominal pain [Recovering/Resolving]
  - Abdominal pain [Unknown]
  - Diarrhoea [Recovering/Resolving]
  - Wrist fracture [Not Recovered/Not Resolved]
  - Pain [Not Recovered/Not Resolved]
  - Device malfunction [Unknown]
  - Impaired healing [Not Recovered/Not Resolved]
  - Gastrointestinal disorder [Recovered/Resolved]
  - Adverse drug reaction [Recovered/Resolved]
  - Osteopenia [Unknown]
  - Weight decreased [Unknown]
  - Hyperhidrosis [Unknown]
  - Anosmia [Unknown]
  - Dysphonia [Unknown]
  - Dyspnoea [Unknown]
  - Change of bowel habit [Unknown]
  - Thirst [Unknown]
  - Nephritis [Unknown]
  - Emphysema [Unknown]
  - Herpes zoster [Unknown]
  - Lipase increased [Unknown]
  - Sepsis [Unknown]
  - Device malfunction [Unknown]
  - Sinusitis [Unknown]
  - Blood disorder [Unknown]
  - Bone disorder [Unknown]
  - Enterococcal infection [Unknown]
  - Spinal disorder [Unknown]
  - Prostatic disorder [Unknown]
  - Dehydration [Unknown]
  - Steroid therapy [Unknown]
  - Muscle strain [Unknown]
  - Polyarthritis [Not Recovered/Not Resolved]
  - Synovitis [Unknown]
  - Joint effusion [Unknown]
  - Joint effusion [Unknown]
  - Synovitis [Unknown]
  - Road traffic accident [Unknown]
  - Tonsillar disorder [Unknown]
  - Arthropathy [Unknown]
  - Infection [Unknown]
  - Staphylococcal infection [Unknown]
  - Arthritis bacterial [Unknown]
  - Irritable bowel syndrome [Unknown]
  - Light chain analysis increased [Unknown]
  - Seborrhoeic dermatitis [Unknown]
  - Sinus disorder [Unknown]
  - Pyrexia [Unknown]
  - Dental caries [Unknown]
  - Fracture nonunion [Unknown]
  - Pyrexia [Unknown]
  - Excoriation [Unknown]
  - Device related infection [Not Recovered/Not Resolved]
  - Wheezing [Unknown]
  - Osteomyelitis [Unknown]
  - Arthropathy [Unknown]
  - Post laminectomy syndrome [Unknown]
  - Drug intolerance [Unknown]
  - Feeling abnormal [Unknown]
  - Arthropathy [Unknown]
  - Gait disturbance [Unknown]
  - Device failure [Unknown]
  - Infection [Unknown]
  - Oedema [Unknown]
  - Spinal compression fracture [Unknown]
  - Depression [Unknown]
  - Fatigue [Unknown]
  - Dry mouth [Unknown]
  - Fatigue [Unknown]
  - Headache [Unknown]
  - Neck pain [Unknown]
  - Pain in extremity [Unknown]
  - Dyspepsia [Unknown]
  - Iritis [Unknown]
  - Nausea [Unknown]
  - Vomiting [Unknown]
  - Pyrexia [Unknown]
  - Rash [Unknown]
  - Rash [Unknown]
  - Drug ineffective [Unknown]
  - Pruritus [Unknown]
  - Pruritus [Not Recovered/Not Resolved]
  - Rash [Unknown]
  - Drug hypersensitivity [Unknown]
  - Spinal column injury [Unknown]
